FAERS Safety Report 7125437-1 (Version None)
Quarter: 2010Q4

REPORT INFORMATION
  Report Type: 
  Country: None (occurrence: None)
  Receive Date: 20101129
  Receipt Date: 20101119
  Transmission Date: 20110411
  Serious: Yes (Other)
  Sender: FDA-Public Use
  Company Number: CA-ABBOTT-10P-028-0671486-00

PATIENT
  Age: 63 Year
  Sex: Male

DRUGS (5)
  1. BIAXIN XL [Suspect]
     Indication: INFECTION
     Route: 048
     Dates: start: 20100201, end: 20100204
  2. IMIPRAMINE HCL [Concomitant]
     Indication: PRODUCT USED FOR UNKNOWN INDICATION
     Dosage: QHS
     Route: 048
  3. OXYCONTIN [Concomitant]
     Indication: PRODUCT USED FOR UNKNOWN INDICATION
     Dosage: 10 MG BID
     Route: 048
  4. PMS DOCUSATE CALCIUM [Concomitant]
     Indication: PRODUCT USED FOR UNKNOWN INDICATION
     Route: 048
  5. PMS VENLAFAXINE XR [Concomitant]
     Indication: PRODUCT USED FOR UNKNOWN INDICATION
     Route: 048

REACTIONS (5)
  - ABDOMINAL DISCOMFORT [None]
  - HAEMATOCHEZIA [None]
  - MUCOUS STOOLS [None]
  - NAUSEA [None]
  - VOMITING [None]
